FAERS Safety Report 20618027 (Version 1)
Quarter: 2022Q1

REPORT INFORMATION
  Report Type: Spontaneous
  Country: CA (occurrence: None)
  Receive Date: 20220321
  Receipt Date: 20220321
  Transmission Date: 20220424
  Serious: Yes (Death)
  Sender: FDA-Public Use
  Company Number: CA-FRESENIUS KABI-FK202203198

PATIENT
  Age: 35 Year
  Sex: Male
  Weight: 95 kg

DRUGS (3)
  1. FENTANYL [Suspect]
     Active Substance: FENTANYL
     Indication: Product used for unknown indication
     Route: 065
  2. COCAINE [Suspect]
     Active Substance: COCAINE
     Indication: Product used for unknown indication
     Route: 065
  3. ALCOHOL [Suspect]
     Active Substance: ALCOHOL
     Indication: Product used for unknown indication
     Route: 065

REACTIONS (5)
  - Blood ethanol [Fatal]
  - Opiates positive [Fatal]
  - Postmortem blood drug level abnormal [Fatal]
  - Toxicity to various agents [Fatal]
  - Drug abuse [Fatal]
